FAERS Safety Report 4425786-1 (Version None)
Quarter: 2004Q3

REPORT INFORMATION
  Report Type: 
  Country: None (occurrence: None)
  Receive Date: 20040810
  Receipt Date: 20040802
  Transmission Date: 20050211
  Serious: Yes (Hospitalization)
  Sender: FDA-Public Use
  Company Number: 20457

PATIENT
  Age: 53 Year
  Sex: Male
  Weight: 86.1834 kg

DRUGS (4)
  1. NIASPAN [Suspect]
     Indication: HIGH DENSITY LIPOPROTEIN DECREASED
     Dosage: 500 MG QHS PO
     Route: 048
     Dates: start: 20040726, end: 20040728
  2. NIASPAN [Suspect]
     Indication: LOW DENSITY LIPOPROTEIN INCREASED
     Dosage: 500 MG QHS PO
     Route: 048
     Dates: start: 20040726, end: 20040728
  3. ENTERIC-COATED BABY ASPIRIN [Concomitant]
  4. LAMISIL [Concomitant]

REACTIONS (3)
  - FLUSHING [None]
  - HEART RATE ABNORMAL [None]
  - PRURITUS [None]
